FAERS Safety Report 8299100-8 (Version None)
Quarter: 2012Q2

REPORT INFORMATION
  Report Type: 
  Country: None (occurrence: None)
  Receive Date: 20120419
  Receipt Date: 20120410
  Transmission Date: 20120825
  Serious: Yes (Other)
  Sender: FDA-Public Use
  Company Number: FR-ASTRAZENECA-2012SE24482

PATIENT
  Age: 21742 Day
  Sex: Male

DRUGS (15)
  1. ANCOTIL [Concomitant]
     Dates: end: 20120224
  2. REVATIO [Concomitant]
  3. CEFTRIAXONE [Concomitant]
     Dates: start: 20120210
  4. PROGRAF [Concomitant]
  5. SOLU-MEDROL [Concomitant]
  6. AMBISOME [Concomitant]
     Dates: end: 20120224
  7. NOVORAPID [Concomitant]
  8. CALCIPARINE [Concomitant]
  9. XANAX [Concomitant]
  10. LANTUS [Concomitant]
  11. FLOLAN [Concomitant]
  12. NEXIUM [Suspect]
     Route: 048
     Dates: start: 20120304, end: 20120314
  13. NEXIUM [Suspect]
     Route: 048
     Dates: end: 20120224
  14. MYCOPHENOLATE MOFETIL (CELLCEPT) [Suspect]
     Route: 048
     Dates: start: 20120122, end: 20120308
  15. VOLIBRIS [Concomitant]

REACTIONS (9)
  - GASTROINTESTINAL HAEMORRHAGE [None]
  - NEUTROPENIA [None]
  - ANAEMIA [None]
  - LEUKOPENIA [None]
  - PULMONARY HYPERTENSION [None]
  - CARDIAC FAILURE [None]
  - CANDIDA SEPSIS [None]
  - CAMPYLOBACTER INFECTION [None]
  - ENTEROCOCCAL INFECTION [None]
